FAERS Safety Report 9258075 (Version 1)
Quarter: 2013Q1

REPORT INFORMATION
  Report Type: Spontaneous
  Country: US (occurrence: None)
  Receive Date: 20121212
  Receipt Date: 20121212
  Transmission Date: 20140127
  Serious: No
  Sender: FDA-Public Use
  Company Number: 1209USA004196

PATIENT
  Age: 60 Year
  Sex: Male

DRUGS (3)
  1. PEGINTRON [Suspect]
     Indication: HEPATITIS C
     Dates: start: 20120818
  2. RIBAVIRIN [Suspect]
     Indication: HEPATITIS C
     Route: 048
     Dates: start: 20120818
  3. VICTRELIS [Suspect]
     Indication: HEPATITIS C
     Route: 048
     Dates: start: 20120915

REACTIONS (24)
  - Vision blurred [None]
  - Chills [None]
  - Hyperhidrosis [None]
  - Abdominal pain [None]
  - Dysgeusia [None]
  - Myalgia [None]
  - Injection site erythema [None]
  - Fatigue [None]
  - Sleep disorder [None]
  - Visual impairment [None]
  - Headache [None]
  - Disturbance in attention [None]
  - Rash [None]
  - Eye disorder [None]
  - Memory impairment [None]
  - Dizziness [None]
  - Balance disorder [None]
  - Diarrhoea [None]
  - Nocturia [None]
  - Haematochezia [None]
  - Rash pruritic [None]
  - Anxiety [None]
  - Palpitations [None]
  - Anaemia [None]
